FAERS Safety Report 26180268 (Version 1)
Quarter: 2025Q4

REPORT INFORMATION
  Report Type: Report from Study
  Country: GB (occurrence: None)
  Receive Date: 20251219
  Receipt Date: 20251219
  Transmission Date: 20260117
  Serious: Yes (Other)
  Sender: UCB
  Company Number: GB-UCBSA-2025007085

PATIENT
  Age: 56 Year
  Weight: 85.8 kg

DRUGS (3)
  1. BIMEKIZUMAB [Suspect]
     Active Substance: BIMEKIZUMAB
     Indication: Psoriasis
     Dosage: 320 MILLIGRAM, EV 8 WEEKS
  2. OMEPRAZOLE [Concomitant]
     Active Substance: OMEPRAZOLE
     Indication: Abdominal pain upper
     Dosage: 40 MILLIGRAM, 2X/DAY (BID)
     Route: 061
  3. ITRACONAZOLE [Concomitant]
     Active Substance: ITRACONAZOLE
     Indication: Onychomycosis
     Dosage: 200 MILLIGRAM, 2X/DAY (BID)
     Route: 061

REACTIONS (8)
  - Weight decreased [Not Recovered/Not Resolved]
  - Diarrhoea [Not Recovered/Not Resolved]
  - Seborrhoeic dermatitis [Not Recovered/Not Resolved]
  - Irritable bowel syndrome [Not Recovered/Not Resolved]
  - Oral candidiasis [Not Recovered/Not Resolved]
  - Oral pigmentation [Not Recovered/Not Resolved]
  - Oral leukoedema [Not Recovered/Not Resolved]
  - Glossitis [Not Recovered/Not Resolved]
